FAERS Safety Report 11717020 (Version 3)
Quarter: 2015Q4

REPORT INFORMATION
  Report Type: Spontaneous
  Country: US (occurrence: US)
  Receive Date: 20151104
  Receipt Date: 20151120
  Transmission Date: 20160304
  Serious: No
  Sender: FDA-Public Use
  Company Number: US-ELI_LILLY_AND_COMPANY-US201106007653

PATIENT
  Sex: Female

DRUGS (9)
  1. FORTEO [Suspect]
     Active Substance: TERIPARATIDE
     Indication: OSTEOPOROSIS
     Dosage: 20 UG, QD
     Dates: start: 2011
  2. FORTEO [Suspect]
     Active Substance: TERIPARATIDE
     Dosage: 20 UG, QD
     Dates: end: 20111207
  3. FORTEO [Suspect]
     Active Substance: TERIPARATIDE
     Dosage: 20 UG, QD
     Route: 065
  4. FORTEO [Suspect]
     Active Substance: TERIPARATIDE
     Dosage: 20 UG, QD
  5. FORTEO [Suspect]
     Active Substance: TERIPARATIDE
     Dosage: 20 UG, QD
     Dates: end: 201208
  6. FORTEO [Suspect]
     Active Substance: TERIPARATIDE
     Dosage: 20 UG, QD
     Dates: end: 20120313
  7. FORTEO [Suspect]
     Active Substance: TERIPARATIDE
     Dosage: 20 UG, QD
  8. FORTEO [Suspect]
     Active Substance: TERIPARATIDE
     Dosage: 20 UG, QD
  9. FORTEO [Suspect]
     Active Substance: TERIPARATIDE
     Dosage: 20 UG, QD

REACTIONS (11)
  - Headache [Not Recovered/Not Resolved]
  - Pain [Not Recovered/Not Resolved]
  - Injection site pain [Not Recovered/Not Resolved]
  - Injection site haemorrhage [Not Recovered/Not Resolved]
  - Arthralgia [Unknown]
  - Paraesthesia [Unknown]
  - Injection site bruising [Not Recovered/Not Resolved]
  - Nausea [Unknown]
  - Pain in extremity [Unknown]
  - Dizziness [Unknown]
  - Chest pain [Unknown]
